FAERS Safety Report 7945021-7 (Version None)
Quarter: 2011Q4

REPORT INFORMATION
  Report Type: 
  Country: None (occurrence: None)
  Receive Date: 20111129
  Receipt Date: 20111123
  Transmission Date: 20120403
  Serious: Yes (Other)
  Sender: FDA-Public Use
  Company Number: PHHY2011PK102765

PATIENT
  Age: 78 Year
  Sex: Female

DRUGS (7)
  1. LESCOL [Concomitant]
     Indication: BLOOD CHOLESTEROL INCREASED
     Dosage: UNK UKN, UNK
     Route: 048
     Dates: start: 19940101
  2. SULFASALAZINE [Concomitant]
     Indication: RHEUMATOID ARTHRITIS
     Dosage: UNK UKN, UNK
     Route: 048
     Dates: start: 19940101
  3. CALCIUM CARBONATE [Concomitant]
     Indication: OSTEOPOROSIS
     Dosage: UNK UKN, UNK
     Route: 048
  4. ACETYLSALICYLIC ACID SRT [Concomitant]
     Indication: HYPERTENSION
     Dosage: UNK UKN, UNK
     Route: 048
     Dates: start: 19940101
  5. ZOLEDRONOC ACID [Suspect]
     Indication: OSTEOPOROSIS
     Route: 042
     Dates: start: 20111111
  6. MONISID [Concomitant]
     Indication: CARDIAC DISORDER
     Dosage: UNK UKN, UNK
     Route: 048
     Dates: start: 19940101
  7. ATENOLOL [Concomitant]
     Indication: HYPERTENSION
     Dosage: UNK UKN, UNK
     Route: 048
     Dates: start: 19940101

REACTIONS (7)
  - CHILLS [None]
  - ARTHRALGIA [None]
  - EAR PAIN [None]
  - MUSCULOSKELETAL CHEST PAIN [None]
  - ABDOMINAL PAIN UPPER [None]
  - PYREXIA [None]
  - DYSGEUSIA [None]
